FAERS Safety Report 23191800 (Version 1)
Quarter: 2023Q4

REPORT INFORMATION
  Report Type: Spontaneous
  Country: US (occurrence: None)
  Receive Date: 20231115
  Receipt Date: 20231115
  Transmission Date: 20240110
  Serious: No
  Sender: FDA-Public Use
  Company Number: None

PATIENT
  Age: 58 Year
  Sex: Female

DRUGS (1)
  1. QUTENZA [Suspect]
     Active Substance: CAPSAICIN
     Indication: Neuropathy peripheral
     Dosage: OTHER FREQUENCY : Q90DAYS;?
     Route: 061
     Dates: start: 202305

REACTIONS (2)
  - Burning sensation [None]
  - Sensitive skin [None]

NARRATIVE: CASE EVENT DATE: 20230830
